FAERS Safety Report 20290251 (Version 4)
Quarter: 2023Q2

REPORT INFORMATION
  Report Type: Spontaneous
  Country: JP (occurrence: JP)
  Receive Date: 20220104
  Receipt Date: 20230522
  Transmission Date: 20230721
  Serious: Yes (Death)
  Sender: FDA-Public Use
  Company Number: JP-ORPHANEU-2021005520

PATIENT

DRUGS (8)
  1. ISTURISA [Suspect]
     Active Substance: OSILODROSTAT PHOSPHATE
     Indication: Cushing^s syndrome
     Dosage: 3 MILLIGRAM, BID
     Route: 048
     Dates: start: 20211205, end: 20211205
  2. ISTURISA [Suspect]
     Active Substance: OSILODROSTAT PHOSPHATE
     Dosage: 5 MILLIGRAM, BID
     Route: 048
     Dates: start: 20211206, end: 20211210
  3. ISTURISA [Suspect]
     Active Substance: OSILODROSTAT PHOSPHATE
     Dosage: 3.5 MILLIGRAM, BID
     Route: 048
     Dates: start: 20211210, end: 20211212
  4. FENTANYL [Concomitant]
     Active Substance: FENTANYL
     Indication: Product used for unknown indication
     Dosage: 0.5 MILLIGRAM/DAY/PATCH
     Route: 062
     Dates: start: 20211205, end: 20211208
  5. FENTANYL [Concomitant]
     Active Substance: FENTANYL
     Dosage: 1.0 MILLIGRAM/DAY/PATCH
     Route: 062
     Dates: start: 20211209, end: 20211211
  6. FENTANYL [Concomitant]
     Active Substance: FENTANYL
     Dosage: 1.5 MILLIGRAM/DAY/PATCH
     Route: 062
     Dates: start: 20211212, end: 20211213
  7. METOPIRON [METYRAPONE] [Concomitant]
     Indication: Product used for unknown indication
     Dosage: 500 MILLIGRAM, TID
     Route: 048
     Dates: start: 20211205, end: 20211206
  8. METOPIRON [METYRAPONE] [Concomitant]
     Dosage: 500MG IN THE MORNING, 250MG IN DAY TIME, AND 250MG AT NIGHT
     Route: 048
     Dates: start: 20211206, end: 20211208

REACTIONS (1)
  - Tumour haemorrhage [Fatal]

NARRATIVE: CASE EVENT DATE: 20211215
